FAERS Safety Report 4747047-3 (Version None)
Quarter: 2005Q3

REPORT INFORMATION
  Report Type: 
  Country: None (occurrence: None)
  Receive Date: 20050815
  Receipt Date: 20050801
  Transmission Date: 20060218
  Serious: Yes (Death)
  Sender: FDA-Public Use
  Company Number: S05-USA-03840-01

PATIENT
  Age: 42 Year
  Sex: Female

DRUGS (5)
  1. CELEXA [Suspect]
     Indication: TRICHOTILLOMANIA
     Dosage: 100 MG QD PO
     Route: 048
  2. TRAZODONE [Suspect]
     Indication: SOMNOLENCE
     Dosage: 50 MG
  3. ACETAMINOPHEN [Suspect]
     Indication: HEADACHE
  4. NALTREXONE [Concomitant]
  5. TOPAMAX [Concomitant]

REACTIONS (5)
  - DRUG LEVEL DECREASED [None]
  - DRUG TOXICITY [None]
  - LOSS OF EMPLOYMENT [None]
  - METABOLIC ACIDOSIS [None]
  - TREATMENT NONCOMPLIANCE [None]
